FAERS Safety Report 9158965 (Version 1)
Quarter: 2013Q1

REPORT INFORMATION
  Report Type: Spontaneous
  Country: US (occurrence: US)
  Receive Date: 20130313
  Receipt Date: 20130313
  Transmission Date: 20140127
  Serious: No
  Sender: FDA-Public Use
  Company Number: US-BIOGENIDEC-2013BI021655

PATIENT
  Age: 44 Year
  Sex: Female

DRUGS (2)
  1. TYSABRI [Suspect]
     Indication: MULTIPLE SCLEROSIS
     Route: 042
     Dates: start: 20121213, end: 201301
  2. NOVANTRONE [Concomitant]
     Indication: MULTIPLE SCLEROSIS
     Dates: start: 2001, end: 2003

REACTIONS (5)
  - Urinary incontinence [Unknown]
  - Pollakiuria [Unknown]
  - Tremor [Unknown]
  - Muscular weakness [Unknown]
  - Multiple sclerosis relapse [Not Recovered/Not Resolved]
